FAERS Safety Report 9813828 (Version 1)
Quarter: 2014Q1

REPORT INFORMATION
  Report Type: Spontaneous
  Country: US (occurrence: US)
  Receive Date: 20140113
  Receipt Date: 20140113
  Transmission Date: 20141002
  Serious: No
  Sender: FDA-Public Use
  Company Number: US-GILEAD-2010-0029618

PATIENT
  Age: 62 Year
  Sex: 0

DRUGS (2)
  1. TRUVADA [Suspect]
     Indication: HIV INFECTION
  2. LEXIVA [Concomitant]
     Indication: HIV INFECTION

REACTIONS (1)
  - Blood creatine increased [Unknown]
